FAERS Safety Report 5176440-2 (Version None)
Quarter: 2006Q4

REPORT INFORMATION
  Report Type: 
  Country: None (occurrence: None)
  Receive Date: 20061215
  Receipt Date: 20060926
  Transmission Date: 20070319
  Serious: Yes (Life-Threatening, Hospitalization, Other)
  Sender: FDA-Public Use
  Company Number: JP-BRISTOL-MYERS SQUIBB COMPANY-13530357

PATIENT
  Age: 21 Year
  Sex: Female

DRUGS (4)
  1. RESLIN [Suspect]
     Route: 048
     Dates: start: 20060920
  2. LIMAS [Suspect]
     Route: 048
     Dates: start: 20060920
  3. DOGMATYL [Suspect]
     Route: 048
     Dates: start: 20060920
  4. LORAZEPAM [Suspect]
     Route: 048
     Dates: start: 20060920

REACTIONS (4)
  - COMA [None]
  - DRUG TOXICITY [None]
  - NEUROLEPTIC MALIGNANT SYNDROME [None]
  - SUICIDE ATTEMPT [None]
